FAERS Safety Report 8157361-X (Version None)
Quarter: 2012Q1

REPORT INFORMATION
  Report Type: 
  Country: None (occurrence: None)
  Receive Date: 20120222
  Receipt Date: 20120208
  Transmission Date: 20120608
  Serious: Yes (Other)
  Sender: FDA-Public Use
  Company Number: US-ROCHE-GNE286618

PATIENT
  Sex: Female
  Weight: 94.432 kg

DRUGS (26)
  1. SINGULAIR [Concomitant]
     Indication: ASTHMA
     Dosage: 10 MG, QAM
     Route: 048
  2. BENTYL [Concomitant]
     Indication: IRRITABLE BOWEL SYNDROME
     Dosage: UNK
     Route: 048
  3. HYDROCHLOROTHIAZIDE [Concomitant]
     Indication: HYPERTENSION
     Dosage: UNK
     Route: 048
  4. UNKNOWN MEDICATION [Concomitant]
     Indication: DIABETES MELLITUS
     Dosage: 30 MG, BID
     Route: 048
  5. ZEFORMIN XR [Concomitant]
     Indication: DIABETES MELLITUS
     Dosage: 30 MG/5ML, BID
     Route: 048
  6. ZYRTEC [Concomitant]
     Indication: HYPERSENSITIVITY
     Dosage: 10 MG, QD
     Route: 048
  7. ADVAIR DISKUS 100/50 [Concomitant]
     Indication: ASTHMA
     Dosage: 1 PUFF, BID, DOSE=1 PUFF, DAILY DOSE=2 PUFF
  8. ZOFRAN [Concomitant]
     Indication: GASTROOESOPHAGEAL REFLUX DISEASE
     Dosage: UNK
     Route: 048
  9. AVAPRO [Concomitant]
     Indication: HYPERTENSION
     Dosage: UNK
     Route: 048
  10. TERAZOSIN HCL [Concomitant]
     Indication: HYPERTENSION
     Dosage: 1 MG, QHS
     Route: 048
  11. CETIRIZINE [Concomitant]
     Indication: ANTIALLERGIC THERAPY
     Dosage: 10 MG/5ML, QD
     Route: 048
  12. VERAPAMIL [Concomitant]
     Dosage: UNK
     Route: 048
  13. PREDNISONE [Concomitant]
     Indication: PRODUCT USED FOR UNKNOWN INDICATION
     Dosage: UNK
  14. NEXIUM [Concomitant]
     Indication: GASTROOESOPHAGEAL REFLUX DISEASE
     Dosage: 20 MG, UNK
     Route: 048
  15. PULMICORT-100 [Concomitant]
     Indication: ASTHMA
     Dosage: 1 MG, BID
  16. ZANTAC [Concomitant]
     Indication: PRODUCT USED FOR UNKNOWN INDICATION
  17. TRAMADOL HCL [Concomitant]
     Indication: PAIN
     Dosage: 50 MG, PRN
     Route: 048
  18. XOPENEX [Concomitant]
     Indication: ASTHMA
     Dosage: 1.25 MG, PRN
  19. SINGULAIR [Concomitant]
     Indication: HYPERSENSITIVITY
  20. NASONEX [Concomitant]
     Indication: HYPERSENSITIVITY
     Dosage: 1 UNK, QD
  21. VERAPAMIL [Concomitant]
     Indication: HYPERTENSION
     Dosage: UNK
     Route: 048
  22. OMALIZUMAB [Suspect]
     Indication: SKIN TEST
     Dosage: UNK
     Route: 023
     Dates: start: 20090709, end: 20090709
  23. NASONEX [Concomitant]
     Dosage: UNK
  24. ASTEPRO [Concomitant]
     Indication: RHINITIS ALLERGIC
     Dosage: 1 UNK, QD
  25. PROVENTIL [Concomitant]
     Indication: ASTHMA
     Dosage: 2 PUFF, PRN, DOSE=2 PUFF
  26. BENADRYL [Concomitant]
     Indication: PRODUCT USED FOR UNKNOWN INDICATION

REACTIONS (1)
  - STATUS ASTHMATICUS [None]
